FAERS Safety Report 5656084-6 (Version None)
Quarter: 2008Q1

REPORT INFORMATION
  Report Type: 
  Country: None (occurrence: None)
  Receive Date: 20080305
  Receipt Date: 20080222
  Transmission Date: 20080703
  Serious: Yes (Hospitalization, Other)
  Sender: FDA-Public Use
  Company Number: 2007US003211

PATIENT
  Sex: Male

DRUGS (5)
  1. VAPRISOL [Suspect]
     Indication: INAPPROPRIATE ANTIDIURETIC HORMONE SECRETION
     Dates: start: 20070101, end: 20070101
  2. VERAPAMIL [Suspect]
     Indication: DRUG USE FOR UNKNOWN INDICATION
     Dates: start: 20070101, end: 20070101
  3. METOPROLOL TARTRATE [Concomitant]
  4. FLUCONAZOLE [Concomitant]
  5. AMPHOTERICIN B, LIPOSOME (AMPHOTERICIN B, LIPOSOME) [Concomitant]

REACTIONS (4)
  - ATRIOVENTRICULAR BLOCK SECOND DEGREE [None]
  - BLOOD PRESSURE DECREASED [None]
  - DRUG INTERACTION [None]
  - METABOLIC DISORDER [None]
